FAERS Safety Report 5611705-9 (Version None)
Quarter: 2008Q1

REPORT INFORMATION
  Report Type: 
  Country: None (occurrence: None)
  Receive Date: 20080201
  Receipt Date: 20080125
  Transmission Date: 20080703
  Serious: Yes (Hospitalization)
  Sender: FDA-Public Use
  Company Number: BY-MERCK-0801RUS00029

PATIENT
  Age: 57 Year
  Sex: Male

DRUGS (10)
  1. ZOCOR [Suspect]
     Indication: MYOCARDIAL ISCHAEMIA
     Route: 048
  2. ZOCOR [Suspect]
     Indication: ANGINA PECTORIS
     Route: 048
  3. ENALAPRIL MALEATE [Concomitant]
     Indication: MYOCARDIAL ISCHAEMIA
     Route: 048
  4. ENALAPRIL MALEATE [Concomitant]
     Indication: ANGINA PECTORIS
     Route: 048
  5. ASPIRIN AND MAGNESIUM HYDROXIDE [Concomitant]
     Indication: MYOCARDIAL ISCHAEMIA
     Route: 048
  6. ASPIRIN AND MAGNESIUM HYDROXIDE [Concomitant]
     Indication: ANGINA PECTORIS
     Route: 048
  7. ISOSORBIDE DINITRATE [Concomitant]
     Indication: MYOCARDIAL ISCHAEMIA
     Route: 048
  8. ISOSORBIDE DINITRATE [Concomitant]
     Indication: ANGINA PECTORIS
     Route: 048
  9. BISOPROLOL FUMARATE [Concomitant]
     Indication: MYOCARDIAL ISCHAEMIA
     Route: 048
  10. BISOPROLOL FUMARATE [Concomitant]
     Indication: ANGINA PECTORIS
     Route: 048

REACTIONS (1)
  - MYOCARDIAL INFARCTION [None]
